FAERS Safety Report 10070280 (Version 1)
Quarter: 2014Q2

REPORT INFORMATION
  Report Type: Spontaneous
  Country: US (occurrence: US)
  Receive Date: 20140410
  Receipt Date: 20140410
  Transmission Date: 20141212
  Serious: Yes (Other)
  Sender: FDA-Public Use
  Company Number: US-PFIZER INC-2014100655

PATIENT
  Age: 49 Year
  Sex: Male
  Weight: 79.37 kg

DRUGS (1)
  1. EFFEXOR XR [Suspect]
     Indication: POST-TRAUMATIC STRESS DISORDER
     Dosage: 150 MG, DAILY
     Dates: start: 2008

REACTIONS (5)
  - Product quality issue [Unknown]
  - Suicidal ideation [Unknown]
  - Anger [Unknown]
  - Disturbance in attention [Unknown]
  - Malaise [Unknown]
